FAERS Safety Report 6922985-1 (Version None)
Quarter: 2010Q3

REPORT INFORMATION
  Report Type: 
  Country: None (occurrence: None)
  Receive Date: 20100813
  Receipt Date: 20100804
  Transmission Date: 20110219
  Serious: Yes (Disabling)
  Sender: FDA-Public Use
  Company Number: GB-PFIZER INC-2010098320

PATIENT
  Age: 43 Year
  Sex: Female

DRUGS (1)
  1. CHAMPIX [Suspect]
     Dosage: UNK
     Route: 048
     Dates: start: 20100718

REACTIONS (4)
  - CRYING [None]
  - HALLUCINATION [None]
  - MENTAL DISORDER [None]
  - SLEEP DISORDER [None]
